APPROVED DRUG PRODUCT: PREDNISOLONE
Active Ingredient: PREDNISOLONE
Strength: 5MG
Dosage Form/Route: TABLET;ORAL
Application: A088892 | Product #001
Applicant: SUPERPHARM CORP
Approved: Feb 26, 1985 | RLD: No | RS: No | Type: DISCN